FAERS Safety Report 5102133-3 (Version None)
Quarter: 2006Q3

REPORT INFORMATION
  Report Type: 
  Country: None (occurrence: None)
  Receive Date: 20060912
  Receipt Date: 20060901
  Transmission Date: 20061208
  Serious: Yes (Disabling)
  Sender: FDA-Public Use
  Company Number: IT-ABBOTT-06P-083-0342972-00

PATIENT
  Age: 55 Year
  Sex: Female

DRUGS (3)
  1. MACLADIN [Suspect]
     Indication: GASTRITIS
     Route: 048
     Dates: start: 20060401, end: 20060414
  2. ESOMEPRAZOLE MAGNESIUM [Suspect]
     Indication: GASTRITIS
     Route: 048
     Dates: start: 20060401, end: 20060505
  3. CLAVULIN [Suspect]
     Indication: GASTRITIS
     Route: 048
     Dates: start: 20060401, end: 20060414

REACTIONS (2)
  - MYALGIA [None]
  - VISION BLURRED [None]
